FAERS Safety Report 4529645-5 (Version None)
Quarter: 2004Q4

REPORT INFORMATION
  Report Type: 
  Country: None (occurrence: None)
  Receive Date: 20041216
  Receipt Date: 20041105
  Transmission Date: 20050328
  Serious: Yes (Life-Threatening, Disabling)
  Sender: FDA-Public Use
  Company Number: US-MERCK-0411USA00930

PATIENT
  Age: 73 Year
  Sex: Female

DRUGS (4)
  1. VIOXX [Suspect]
     Indication: OSTEOARTHRITIS
     Route: 048
     Dates: start: 19990101
  2. VIOXX [Suspect]
     Route: 048
     Dates: start: 20031101
  3. VIOXX [Suspect]
     Route: 048
     Dates: start: 20040501
  4. VIOXX [Suspect]
     Route: 048
     Dates: start: 20040701, end: 20040916

REACTIONS (4)
  - CEREBROVASCULAR ACCIDENT [None]
  - FATIGUE [None]
  - MEDICATION ERROR [None]
  - PARAESTHESIA [None]
